FAERS Safety Report 4490201-9 (Version None)
Quarter: 2004Q4

REPORT INFORMATION
  Report Type: 
  Country: None (occurrence: None)
  Receive Date: 20041027
  Receipt Date: 20041014
  Transmission Date: 20050328
  Serious: Yes (Hospitalization, Other)
  Sender: FDA-Public Use
  Company Number: 2004080003

PATIENT
  Age: 60 Year
  Sex: Female
  Weight: 68.0396 kg

DRUGS (17)
  1. LIPITOR [Suspect]
     Indication: BLOOD CHOLESTEROL INCREASED
     Dosage: 10 MG (10 MG, 1 IN 1 D), ORAL
     Route: 048
     Dates: start: 19970101, end: 20020101
  2. DOFETILIDE (DOFETILIDE) [Suspect]
     Indication: HEART RATE INCREASED
     Dosage: 10000 MCG (500 MG, 2 IN 1 D), ORAL
     Route: 048
     Dates: start: 20041008
  3. ALENDRONATE SODIUM [Suspect]
     Indication: OSTEOPOROSIS
     Dosage: ORAL
     Route: 048
     Dates: end: 20040101
  4. DIGOXIN [Concomitant]
  5. ATENOLOL [Concomitant]
  6. GEMFIBROZIL [Concomitant]
  7. INFLIXIMAB (INFLIXIMAB) [Concomitant]
  8. FOLIC ACID [Concomitant]
  9. METHOTREXATE [Concomitant]
  10. INSULIN GLARGINE (INSULIN GLARGINE) [Concomitant]
  11. INSULIN [Concomitant]
  12. FISH OIL (FISH OIL) [Concomitant]
  13. VITAMINS 9VITAMINS) [Concomitant]
  14. NICOTINIC ACID [Concomitant]
  15. ESTRADIOL [Concomitant]
  16. DIAZEPAM [Concomitant]
  17. CODEINE PHOSPHATE AND ACETAMINOPHEN [Concomitant]

REACTIONS (5)
  - BACK PAIN [None]
  - DRUG EFFECT DECREASED [None]
  - DYSPHAGIA [None]
  - HEART RATE INCREASED [None]
  - MUSCLE SPASMS [None]
